FAERS Safety Report 7159215-4 (Version None)
Quarter: 2010Q4

REPORT INFORMATION
  Report Type: 
  Country: None (occurrence: None)
  Receive Date: 20101214
  Receipt Date: 20100812
  Transmission Date: 20110411
  Serious: No
  Sender: FDA-Public Use
  Company Number: US-ASTRAZENECA-2010SE37919

PATIENT
  Age: 49 Year
  Sex: Female
  Weight: 79.4 kg

DRUGS (1)
  1. CRESTOR [Suspect]
     Indication: HYPERCHOLESTEROLAEMIA
     Route: 048

REACTIONS (3)
  - BLADDER DILATATION [None]
  - NAUSEA [None]
  - POLLAKIURIA [None]
